FAERS Safety Report 23576335 (Version 1)
Quarter: 2024Q1

REPORT INFORMATION
  Report Type: Spontaneous
  Country: US (occurrence: None)
  Receive Date: 20240228
  Receipt Date: 20240228
  Transmission Date: 20240410
  Serious: Yes (Other)
  Sender: FDA-Public Use
  Company Number: US-ACS-20240065

PATIENT
  Sex: Male

DRUGS (19)
  1. CEFEPIME [Suspect]
     Active Substance: CEFEPIME HYDROCHLORIDE
     Indication: Evidence based treatment
     Route: 040
     Dates: start: 20240206, end: 20240210
  2. FOSMANOGEPIX [Concomitant]
     Active Substance: FOSMANOGEPIX
     Route: 040
     Dates: start: 20240105
  3. METRONIDAZOLE [Concomitant]
     Active Substance: METRONIDAZOLE
     Indication: Evidence based treatment
     Route: 040
     Dates: start: 20240210, end: 20240210
  4. ACETAMINOPHEN [Suspect]
     Active Substance: ACETAMINOPHEN
     Indication: Pain
     Route: 040
     Dates: start: 20240206, end: 20240208
  5. MIDAZOLAM [Suspect]
     Active Substance: MIDAZOLAM
     Indication: Anxiety
     Route: 040
     Dates: start: 20240205
  6. NORVASC [Suspect]
     Active Substance: AMLODIPINE BESYLATE
     Indication: Hypertension
     Route: 048
     Dates: start: 20240208
  7. AMBISOME [Suspect]
     Active Substance: AMPHOTERICIN B
     Indication: Fusarium infection
     Dosage: 10MG/KG=400MG
     Route: 040
     Dates: start: 20240130, end: 20240206
  8. APREPITANT [Suspect]
     Active Substance: APREPITANT
     Indication: Nausea
     Route: 040
     Dates: start: 20240124
  9. CLONIDINE [Suspect]
     Active Substance: CLONIDINE
     Route: 061
     Dates: start: 20240121
  10. DEXAMETHASONE [Suspect]
     Active Substance: DEXAMETHASONE
     Indication: Hydrocephalus
     Route: 040
     Dates: start: 20240208
  11. ECULIZUMAB [Suspect]
     Active Substance: ECULIZUMAB
     Indication: Thrombotic microangiopathy
     Route: 040
     Dates: start: 20240112
  12. LASIX [Suspect]
     Active Substance: FUROSEMIDE
     Indication: Polyuria
     Route: 040
     Dates: start: 20240205, end: 20240212
  13. GABAPENTIN [Suspect]
     Active Substance: GABAPENTIN
     Indication: Pain
     Dates: start: 20231229
  14. LABETALOL [Suspect]
     Active Substance: LABETALOL\LABETALOL HYDROCHLORIDE
     Indication: Hypertension
     Route: 048
     Dates: start: 20240202
  15. LEVETIRACETAM [Suspect]
     Active Substance: LEVETIRACETAM
     Indication: Seizure prophylaxis
     Route: 040
     Dates: start: 20240205
  16. VALACYCLOVIR HYDROCHLORIDE [Suspect]
     Active Substance: VALACYCLOVIR HYDROCHLORIDE
     Indication: Prophylaxis
     Route: 048
     Dates: start: 20231228
  17. URSODIOL [Suspect]
     Active Substance: URSODIOL
     Indication: Cholestasis
     Dosage: 300MG 3 TIMES PER DAY
     Dates: start: 20240108
  18. SIROLIMUS [Suspect]
     Active Substance: SIROLIMUS
     Indication: Immunosuppression
     Dosage: 1-2MG EVERY DAY ()
     Route: 048
     Dates: start: 20240103
  19. OLANZAPINE [Suspect]
     Active Substance: OLANZAPINE
     Indication: Anxiety
     Route: 048
     Dates: start: 20240201

REACTIONS (1)
  - Nephropathy toxic [Unknown]
